FAERS Safety Report 21365491 (Version 1)
Quarter: 2022Q3

REPORT INFORMATION
  Report Type: Spontaneous
  Country: CN (occurrence: CN)
  Receive Date: 20220922
  Receipt Date: 20220922
  Transmission Date: 20221026
  Serious: Yes (Hospitalization, Other)
  Sender: FDA-Public Use
  Company Number: CN-Eisai Medical Research-EC-2022-123780

PATIENT
  Age: 36 Year
  Sex: Female

DRUGS (2)
  1. FYCOMPA [Suspect]
     Active Substance: PERAMPANEL
     Indication: Epilepsy
     Dosage: FREQUENCY UNKNOWN
     Route: 048
     Dates: end: 202209
  2. FYCOMPA [Suspect]
     Active Substance: PERAMPANEL
     Dosage: OVERDOSE (7 BOXES)
     Route: 048
     Dates: start: 202209, end: 202209

REACTIONS (6)
  - Status epilepticus [Recovered/Resolved]
  - Mania [Recovered/Resolved]
  - Delirium [Recovered/Resolved]
  - Dysphoria [Recovered/Resolved]
  - Intentional overdose [Recovered/Resolved]
  - Communication disorder [Unknown]

NARRATIVE: CASE EVENT DATE: 20220901
